FAERS Safety Report 16349210 (Version 1)
Quarter: 2019Q2

REPORT INFORMATION
  Report Type: Spontaneous
  Country: US (occurrence: US)
  Receive Date: 20190523
  Receipt Date: 20190523
  Transmission Date: 20190711
  Serious: No
  Sender: FDA-Public Use
  Company Number: US-GLAXOSMITHKLINE-US2019AMR083014

PATIENT
  Sex: Female

DRUGS (5)
  1. GABAPENTIN. [Suspect]
     Active Substance: GABAPENTIN
     Indication: PRODUCT USED FOR UNKNOWN INDICATION
  2. TRAZODONE [Suspect]
     Active Substance: TRAZODONE HYDROCHLORIDE
  3. LAMICTAL [Suspect]
     Active Substance: LAMOTRIGINE
     Indication: PRODUCT USED FOR UNKNOWN INDICATION
     Route: 048
  4. VISTARIL [Suspect]
     Active Substance: HYDROXYZINE PAMOATE
     Indication: PRODUCT USED FOR UNKNOWN INDICATION
  5. ZOLOFT [Suspect]
     Active Substance: SERTRALINE HYDROCHLORIDE

REACTIONS (3)
  - Ill-defined disorder [Unknown]
  - Rash [Unknown]
  - Panic attack [Unknown]
